FAERS Safety Report 11048327 (Version 1)
Quarter: 2015Q2

REPORT INFORMATION
  Report Type: Spontaneous
  Country: US (occurrence: US)
  Receive Date: 20150420
  Receipt Date: 20150420
  Transmission Date: 20150821
  Serious: Yes (Death, Hospitalization)
  Sender: FDA-Public Use
  Company Number: US-ROCHE-1565291

PATIENT
  Age: 60 Year
  Sex: Female

DRUGS (5)
  1. PERJETA [Suspect]
     Active Substance: PERTUZUMAB
     Indication: PRODUCT USED FOR UNKNOWN INDICATION
     Route: 065
  2. PERJETA [Suspect]
     Active Substance: PERTUZUMAB
     Dosage: SECOND CYCLE OF PERJETA
     Route: 065
     Dates: start: 20150404
  3. CARBOPLATIN. [Concomitant]
     Active Substance: CARBOPLATIN
  4. HERCEPTIN [Suspect]
     Active Substance: TRASTUZUMAB
     Indication: PRODUCT USED FOR UNKNOWN INDICATION
     Route: 065
  5. TAXOTERE [Concomitant]
     Active Substance: DOCETAXEL

REACTIONS (2)
  - Pancytopenia [Fatal]
  - Febrile neutropenia [Fatal]
